FAERS Safety Report 22132278 (Version 1)
Quarter: 2023Q1

REPORT INFORMATION
  Report Type: Report from Study
  Country: US (occurrence: US)
  Receive Date: 20230323
  Receipt Date: 20230323
  Transmission Date: 20230417
  Serious: No
  Sender: FDA-Public Use
  Company Number: US-002147023-NVSC2023US065587

PATIENT
  Age: 77 Year
  Sex: Female

DRUGS (1)
  1. TRIAMCINOLONE ACETONIDE [Suspect]
     Active Substance: TRIAMCINOLONE ACETONIDE
     Indication: Psoriasis
     Dosage: UNK, BID
     Route: 061

REACTIONS (2)
  - Skin lesion [Unknown]
  - Psoriasis [Unknown]

NARRATIVE: CASE EVENT DATE: 20220926
